FAERS Safety Report 4993057-0 (Version None)
Quarter: 2006Q1

REPORT INFORMATION
  Report Type: 
  Country: None (occurrence: None)
  Receive Date: 20060313
  Receipt Date: 20051107
  Transmission Date: 20060701
  Serious: No
  Sender: FDA-Public Use
  Company Number: 2005-BP-17053BP

PATIENT
  Age: 49 Year
  Sex: Female
  Weight: 92.99 kg

DRUGS (5)
  1. SPIRIVA [Suspect]
     Indication: ASTHMA
     Dosage: 18 MCG (18 MCG,1 IN 1 D),IH
     Dates: start: 20050701
  2. SPIRIVA [Suspect]
     Indication: CHRONIC OBSTRUCTIVE PULMONARY DISEASE
     Dosage: 18 MCG (18 MCG,1 IN 1 D),IH
     Dates: start: 20050701
  3. SPIRIVA [Suspect]
     Indication: COUGH
     Dosage: 18 MCG (18 MCG,1 IN 1 D),IH
     Dates: start: 20050701
  4. FLONASE [Concomitant]
  5. DIOVAN [Concomitant]

REACTIONS (3)
  - AGEUSIA [None]
  - CHEST PAIN [None]
  - WHEEZING [None]
